FAERS Safety Report 8891780 (Version 1)
Quarter: 2012Q4

REPORT INFORMATION
  Report Type: 
  Country: US (occurrence: US)
  Receive Date: 20121107
  Receipt Date: 20121107
  Transmission Date: 20130627
  Serious: No
  Sender: FDA-Public Use
  Company Number: US-AMGEN-USASP2011056481

PATIENT
  Age: 66 Year
  Sex: Male

DRUGS (6)
  1. ENBREL [Suspect]
     Indication: PRODUCT USED FOR UNKNOWN INDICATION
     Dosage: 50 mg, 2 times/wk
     Route: 058
  2. PROTOPIC                           /01219901/ [Concomitant]
     Dosage: .001 IU, UNK
  3. MUPIROCIN [Concomitant]
     Dosage: .02 IU, UNK
  4. MULTIVITAMIN                       /00097801/ [Concomitant]
  5. KEFLEX                             /00145501/ [Concomitant]
  6. PREDNISONE [Concomitant]
     Dosage: 5 mg, UNK

REACTIONS (1)
  - Infection [Unknown]
